FAERS Safety Report 7589830-5 (Version None)
Quarter: 2011Q3

REPORT INFORMATION
  Report Type: 
  Country: None (occurrence: None)
  Receive Date: 20110705
  Receipt Date: 20110624
  Transmission Date: 20111222
  Serious: Yes (Other)
  Sender: FDA-Public Use
  Company Number: US-RB-026474-11

PATIENT
  Age: 73 Year
  Sex: Female

DRUGS (1)
  1. MUCINEX MOISTURE SMART NASAL SPRAY [Suspect]
     Route: 045

REACTIONS (1)
  - EPISTAXIS [None]
